FAERS Safety Report 14922651 (Version 1)
Quarter: 2018Q2

REPORT INFORMATION
  Report Type: Spontaneous
  Country: DE (occurrence: DE)
  Receive Date: 20180522
  Receipt Date: 20180522
  Transmission Date: 20180711
  Serious: No
  Sender: FDA-Public Use
  Company Number: DE-LUPIN PHARMACEUTICALS INC.-2017-04740

PATIENT
  Age: 26 Year
  Sex: Male

DRUGS (2)
  1. QUETIAPIN-HORMOSAN 200 MG FILMTABLETTEN [Suspect]
     Active Substance: QUETIAPINE FUMARATE
     Indication: PSYCHOTIC DISORDER
     Dosage: 200 MG, QD
     Route: 048
     Dates: start: 20170806, end: 20170809
  2. QUETIAPIN-HORMOSAN 100 MG FILMTABLETTEN [Suspect]
     Active Substance: QUETIAPINE FUMARATE
     Indication: PSYCHOTIC DISORDER
     Dosage: 100 MG, QD
     Route: 048
     Dates: start: 20170729

REACTIONS (5)
  - Dizziness [Recovered/Resolved]
  - Insomnia [Unknown]
  - Nightmare [Recovered/Resolved]
  - Sluggishness [Recovered/Resolved]
  - Sleep paralysis [Recovered/Resolved]

NARRATIVE: CASE EVENT DATE: 20170804
